FAERS Safety Report 21401320 (Version 1)
Quarter: 2022Q4

REPORT INFORMATION
  Report Type: Report from Study
  Country: AU (occurrence: AU)
  Receive Date: 20221003
  Receipt Date: 20221003
  Transmission Date: 20230113
  Serious: Yes (Hospitalization)
  Sender: FDA-Public Use
  Company Number: AU-BRISTOL-MYERS SQUIBB COMPANY-2022-113269

PATIENT
  Age: 83 Year
  Sex: Male

DRUGS (2)
  1. NIVOLUMAB [Suspect]
     Active Substance: NIVOLUMAB
     Indication: Metastatic malignant melanoma
     Route: 042
     Dates: start: 20220727, end: 20220907
  2. IPILIMUMAB [Suspect]
     Active Substance: IPILIMUMAB
     Indication: Metastatic malignant melanoma
     Route: 042
     Dates: start: 20220727, end: 20220907

REACTIONS (3)
  - Ageusia [Unknown]
  - Dry mouth [Unknown]
  - Weight decreased [Unknown]

NARRATIVE: CASE EVENT DATE: 20220831
